FAERS Safety Report 21886083 (Version 1)
Quarter: 2023Q1

REPORT INFORMATION
  Report Type: Spontaneous
  Country: US (occurrence: None)
  Receive Date: 20230118
  Receipt Date: 20230118
  Transmission Date: 20230418
  Serious: Yes (Death, Hospitalization)
  Sender: FDA-Public Use
  Company Number: None

PATIENT
  Age: 80 Year
  Sex: Female
  Weight: 62 kg

DRUGS (1)
  1. DABIGATRAN [Suspect]
     Active Substance: DABIGATRAN
     Indication: Atrial fibrillation
     Dosage: FREQUENCY : TWICE A DAY;?
     Route: 048
     Dates: start: 20211130, end: 20221119

REACTIONS (7)
  - Subdural haemorrhage [None]
  - Ecchymosis [None]
  - General physical health deterioration [None]
  - Infarction [None]
  - Venous thrombosis [None]
  - Carotid arteriosclerosis [None]
  - Carotid artery restenosis [None]

NARRATIVE: CASE EVENT DATE: 20221119
